FAERS Safety Report 6582010-1 (Version None)
Quarter: 2010Q1

REPORT INFORMATION
  Report Type: 
  Country: None (occurrence: None)
  Receive Date: 20100215
  Receipt Date: 20100205
  Transmission Date: 20100710
  Serious: Yes (Hospitalization)
  Sender: FDA-Public Use
  Company Number: US-ABBOTT-10P-163-0624654-00

PATIENT
  Sex: Female
  Weight: 74.91 kg

DRUGS (16)
  1. HUMIRA [Suspect]
     Indication: RHEUMATOID ARTHRITIS
     Route: 058
     Dates: start: 20060101, end: 20100116
  2. ATACAND [Concomitant]
     Indication: DRUG USE FOR UNKNOWN INDICATION
     Dosage: 32/12.5
  3. TOPROL-XL [Concomitant]
     Indication: BLOOD PRESSURE
  4. QUINIDINE HCL [Concomitant]
     Indication: BLOOD PRESSURE
  5. COZAAR [Concomitant]
     Indication: BLOOD PRESSURE
  6. SYNTHROID [Concomitant]
     Indication: HYPOTHYROIDISM
  7. NEXIUM [Concomitant]
     Indication: GASTRIC DISORDER
  8. PREMARIN [Concomitant]
     Indication: DRUG USE FOR UNKNOWN INDICATION
  9. K-DUR [Concomitant]
     Indication: DRUG USE FOR UNKNOWN INDICATION
  10. PREDNISONE [Concomitant]
     Indication: DRUG USE FOR UNKNOWN INDICATION
  11. FOLIC ACID [Concomitant]
     Indication: DRUG USE FOR UNKNOWN INDICATION
  12. METHOTREXATE [Concomitant]
     Indication: ARTHRITIS
  13. OSCAL D [Concomitant]
     Indication: DRUG USE FOR UNKNOWN INDICATION
  14. VIT C [Concomitant]
     Indication: DRUG USE FOR UNKNOWN INDICATION
  15. MVI FOR WOMEN [Concomitant]
     Indication: DRUG USE FOR UNKNOWN INDICATION
  16. ASPIRIN [Concomitant]
     Indication: DRUG USE FOR UNKNOWN INDICATION

REACTIONS (6)
  - DRUG DOSE OMISSION [None]
  - HYPERTENSION [None]
  - INCISION SITE INFECTION [None]
  - MUSCULOSKELETAL PAIN [None]
  - OBSTRUCTION GASTRIC [None]
  - PAIN IN EXTREMITY [None]
